FAERS Safety Report 6698556 (Version 4)
Quarter: 2013Q3

REPORT INFORMATION
  Report Type: Spontaneous
  Country: US (occurrence: US)
  Receive Date: 20080714
  Receipt Date: 20130816
  Transmission Date: 20140515
  Serious: Yes (Hospitalization)
  Sender: FDA-Public Use
  Company Number: US-ELI_LILLY_AND_COMPANY-US200807001187

PATIENT
  Age: 56 Year
  Sex: Female

DRUGS (5)
  1. CYMBALTA [Suspect]
     Indication: SCIATICA
     Dosage: 30 MG, DAILY (1/D)
  2. CYMBALTA [Suspect]
     Dosage: 60 MG, DAILY (1/D)
  3. PREDNISONE [Concomitant]
     Indication: SCIATICA
  4. OXYCODONE [Concomitant]
     Indication: BACK PAIN
  5. ACETAMINOPHEN [Concomitant]
     Indication: BACK PAIN

REACTIONS (1)
  - Liver injury [Recovering/Resolving]
